FAERS Safety Report 7486712-4 (Version None)
Quarter: 2011Q2

REPORT INFORMATION
  Report Type: 
  Country: None (occurrence: None)
  Receive Date: 20110517
  Receipt Date: 20100903
  Transmission Date: 20111010
  Serious: No
  Sender: FDA-Public Use
  Company Number: US-NOVEN-ALL1-2010-04702

PATIENT
  Sex: Male

DRUGS (2)
  1. DAYTRANA [Suspect]
     Dosage: 15 MG, 1X/DAY:QD
     Route: 062
     Dates: start: 20100801, end: 20100827
  2. DAYTRANA [Suspect]
     Dosage: 30 MG, 1X/DAY:QD
     Route: 062
     Dates: start: 20100828

REACTIONS (6)
  - APPLICATION SITE ERYTHEMA [None]
  - THIRST [None]
  - URINE FLOW DECREASED [None]
  - NIGHTMARE [None]
  - DECREASED APPETITE [None]
  - DRUG INEFFECTIVE [None]
